FAERS Safety Report 11080195 (Version 1)
Quarter: 2015Q2

REPORT INFORMATION
  Report Type: Not Available
  Country: ES (occurrence: ES)
  Receive Date: 20150430
  Receipt Date: 20150430
  Transmission Date: 20150821
  Serious: Yes (Hospitalization)
  Sender: FDA-Public Use
  Company Number: ES-MUNDIPHARMA DS AND PHARMACOVIGILANCE-GBR-2015-0027293

PATIENT
  Age: 95 Year
  Sex: Male
  Weight: 57 kg

DRUGS (5)
  1. LORAZEPAM. [Concomitant]
     Active Substance: LORAZEPAM
     Indication: INSOMNIA
     Dosage: 1 MG, DAILY
     Route: 048
  2. OMEPRAZOLE. [Concomitant]
     Active Substance: OMEPRAZOLE
     Indication: PROPHYLAXIS AGAINST GASTROINTESTINAL ULCER
     Dosage: 20 MG, DAILY
     Route: 048
  3. TAMSULOSIN [Concomitant]
     Active Substance: TAMSULOSIN
     Indication: URINARY INCONTINENCE
     Dosage: 0.4 MG, UNK
     Route: 048
  4. TARGIN 5MG/2.5MG COMPRIMIDOS DE LIBERACION PROLONGADA [Suspect]
     Active Substance: NALOXONE HYDROCHLORIDE\OXYCODONE HYDROCHLORIDE
     Indication: PAIN
     Dosage: 2 DF, BID
     Route: 048
     Dates: start: 20150313
  5. QUINAPRIL [Concomitant]
     Active Substance: QUINAPRIL\QUINAPRIL HYDROCHLORIDE
     Indication: HYPERTENSION
     Dosage: 20 MG, DAILY
     Route: 048

REACTIONS (4)
  - Confusional state [Recovering/Resolving]
  - Hypotension [Recovering/Resolving]
  - Decreased appetite [Recovering/Resolving]
  - Disorientation [Recovering/Resolving]

NARRATIVE: CASE EVENT DATE: 20150320
